FAERS Safety Report 20784682 (Version 3)
Quarter: 2023Q1

REPORT INFORMATION
  Report Type: Spontaneous
  Country: US (occurrence: US)
  Receive Date: 20220504
  Receipt Date: 20230130
  Transmission Date: 20230417
  Serious: No
  Sender: FDA-Public Use
  Company Number: US-PFIZER INC-2021523385

PATIENT
  Age: 65 Year
  Sex: Female

DRUGS (4)
  1. INLYTA [Suspect]
     Active Substance: AXITINIB
     Indication: Renal cancer
     Dosage: 3 MG, 2X/DAY (QTY: 90 (NINETY) TABLET)
     Route: 048
  2. INLYTA [Suspect]
     Active Substance: AXITINIB
     Dosage: 5MG
  3. INLYTA [Suspect]
     Active Substance: AXITINIB
     Dosage: UNK
     Dates: end: 20220613
  4. INLYTA [Suspect]
     Active Substance: AXITINIB
     Dosage: 3 MG, CYCLIC, 3 TABLETS TWICE A DAY MONDAYS TO THURSDAYS AND NO MEDICATION FRIDAYS TO SUNDAYS

REACTIONS (2)
  - Off label use [Unknown]
  - Rash [Unknown]
